FAERS Safety Report 12896644 (Version 2)
Quarter: 2016Q4

REPORT INFORMATION
  Report Type: Spontaneous
  Country: JP (occurrence: JP)
  Receive Date: 20161031
  Receipt Date: 20161128
  Transmission Date: 20170207
  Serious: No
  Sender: FDA-Public Use
  Company Number: JP-GLAXOSMITHKLINE-JP2016JPN157544

PATIENT
  Sex: Male

DRUGS (3)
  1. URIEF [Concomitant]
     Active Substance: SILODOSIN
     Dosage: UNK
  2. UBRETID [Concomitant]
     Active Substance: DISTIGMINE BROMIDE
     Dosage: UNK
  3. AVOLVE [Suspect]
     Active Substance: DUTASTERIDE
     Indication: BENIGN PROSTATIC HYPERPLASIA
     Dosage: UNK
     Route: 048

REACTIONS (1)
  - Diarrhoea [Recovered/Resolved]
